FAERS Safety Report 6842202-0 (Version None)
Quarter: 2010Q3

REPORT INFORMATION
  Report Type: 
  Country: None (occurrence: None)
  Receive Date: 20100714
  Receipt Date: 20100118
  Transmission Date: 20110219
  Serious: Yes (Other)
  Sender: FDA-Public Use
  Company Number: US-PFIZER INC-2007061233

PATIENT
  Sex: Male
  Weight: 48.98 kg

DRUGS (22)
  1. CHANTIX [Suspect]
     Indication: SMOKING CESSATION THERAPY
     Dosage: UNK
     Route: 048
  2. CHANTIX [Suspect]
     Route: 048
     Dates: start: 20090407
  3. CHANTIX [Suspect]
     Dosage: 0.5 MG, 1X/DAY
     Route: 048
     Dates: start: 20090423, end: 20090101
  4. CHANTIX [Suspect]
     Dosage: 1 MG, 1X/DAY
     Route: 048
     Dates: start: 20090501, end: 20090101
  5. HYDROCHLOROTHIAZIDE [Concomitant]
     Indication: HYPERTENSION
     Dosage: UNK
  6. ALLEGRA [Concomitant]
     Indication: HYPERSENSITIVITY
     Dosage: UNK
  7. LOVASTATIN [Concomitant]
     Indication: BLOOD CHOLESTEROL INCREASED
     Dosage: UNK
  8. ALEVE (CAPLET) [Concomitant]
     Dosage: UNK
  9. OXYGEN [Concomitant]
  10. TAMSULOSIN [Concomitant]
     Indication: PROSTATIC DISORDER
     Dosage: UNK
     Route: 048
  11. TAMSULOSIN [Concomitant]
     Indication: TESTICULAR SWELLING
  12. LORATADINE [Concomitant]
     Indication: HYPERSENSITIVITY
     Dosage: UNK
  13. ACETYLSALICYLIC ACID [Concomitant]
     Indication: CARDIAC DISORDER
     Dosage: 82 MG, UNK
  14. SIMVASTATIN [Concomitant]
     Indication: BLOOD CHOLESTEROL INCREASED
     Dosage: UNK
  15. COMBIVENT [Concomitant]
     Indication: EMPHYSEMA
     Dosage: UNK
  16. COMBIVENT [Concomitant]
     Indication: CHRONIC OBSTRUCTIVE PULMONARY DISEASE
  17. ADVAIR DISKUS 100/50 [Concomitant]
     Indication: CHRONIC OBSTRUCTIVE PULMONARY DISEASE
     Dosage: UNK
  18. ADVAIR DISKUS 100/50 [Concomitant]
     Indication: EMPHYSEMA
  19. ARFORMOTEROL INHALED [Concomitant]
     Dosage: FREQUENCY; 2X/DAY
     Route: 048
  20. BUDESONIDE [Concomitant]
     Dosage: FREQUENCY: 2X/DAY,
  21. FEXOFENADINE [Concomitant]
     Indication: HYPERSENSITIVITY
     Dosage: 180 MG, 1X/DAY
  22. ALBUTEROL [Concomitant]
     Dosage: UNK

REACTIONS (13)
  - ABDOMINAL DISCOMFORT [None]
  - ABNORMAL DREAMS [None]
  - ANXIETY [None]
  - CONSTIPATION [None]
  - DEPRESSION [None]
  - DRUG INEFFECTIVE [None]
  - DYSPNOEA [None]
  - EMOTIONAL DISTRESS [None]
  - INTESTINAL OBSTRUCTION [None]
  - NIGHTMARE [None]
  - STRESS [None]
  - VISUAL IMPAIRMENT [None]
  - WEIGHT INCREASED [None]
